FAERS Safety Report 19714305 (Version 1)
Quarter: 2021Q3

REPORT INFORMATION
  Report Type: Spontaneous
  Country: US (occurrence: US)
  Receive Date: 20210818
  Receipt Date: 20210818
  Transmission Date: 20211014
  Serious: No
  Sender: FDA-Public Use
  Company Number: US-TEVA-2021-US-1940587

PATIENT
  Sex: Female

DRUGS (1)
  1. COPAXONE [Suspect]
     Active Substance: GLATIRAMER ACETATE
     Dosage: FORM STRENGTH: UNKNOWN
     Route: 065
     Dates: start: 2016

REACTIONS (8)
  - Paraesthesia [Recovered/Resolved]
  - Cold sweat [Recovered/Resolved]
  - Hypopnoea [Recovered/Resolved]
  - Pyrexia [Unknown]
  - Anxiety [Recovered/Resolved]
  - Immediate post-injection reaction [Recovered/Resolved]
  - Chills [Unknown]
  - Abdominal pain upper [Recovered/Resolved]

NARRATIVE: CASE EVENT DATE: 2016
